FAERS Safety Report 14473643 (Version 1)
Quarter: 2018Q1

REPORT INFORMATION
  Report Type: Report from Study
  Country: AU (occurrence: AU)
  Receive Date: 20180201
  Receipt Date: 20180201
  Transmission Date: 20180509
  Serious: Yes (Hospitalization)
  Sender: FDA-Public Use
  Company Number: AU-BIOGEN-2017BI00411826

PATIENT
  Age: 39 Year
  Sex: Male

DRUGS (1)
  1. TYSABRI [Suspect]
     Active Substance: NATALIZUMAB
     Indication: MULTIPLE SCLEROSIS
     Dosage: INFUSED OVER 1 HOUR
     Route: 042
     Dates: start: 20161101

REACTIONS (11)
  - Sinus polyp [Not Recovered/Not Resolved]
  - Dizziness [Recovered/Resolved with Sequelae]
  - Fatigue [Unknown]
  - Anosmia [Not Recovered/Not Resolved]
  - Rhinitis [Not Recovered/Not Resolved]
  - Nausea [Recovered/Resolved with Sequelae]
  - Nasal polyps [Not Recovered/Not Resolved]
  - Vomiting [Recovered/Resolved with Sequelae]
  - Balance disorder [Not Recovered/Not Resolved]
  - Motion sickness [Not Recovered/Not Resolved]
  - Headache [Recovered/Resolved with Sequelae]

NARRATIVE: CASE EVENT DATE: 2016
